FAERS Safety Report 8908264 (Version 1)
Quarter: 2012Q4

REPORT INFORMATION
  Report Type: 
  Country: US (occurrence: US)
  Receive Date: 20121114
  Receipt Date: 20121114
  Transmission Date: 20130627
  Serious: Yes (Other)
  Sender: FDA-Public Use
  Company Number: PHEH2012US022348

PATIENT
  Sex: Female
  Weight: 44.44 kg

DRUGS (2)
  1. GLEEVEC [Suspect]
     Indication: MALIGNANT SOFT TISSUE NEOPLASM
     Dosage: 400 mg, daily
     Route: 048
     Dates: start: 20121019
  2. MULTIVITAMINS [Concomitant]

REACTIONS (1)
  - Toxicity to various agents [Unknown]
